FAERS Safety Report 8887660 (Version 1)
Quarter: 2012Q4

REPORT INFORMATION
  Report Type: Spontaneous
  Country: US (occurrence: None)
  Receive Date: 20121101
  Receipt Date: 20121101
  Transmission Date: 20130627
  Serious: No
  Sender: FDA-Public Use
  Company Number: None

PATIENT
  Age: 52 Year
  Sex: Male
  Weight: 104.33 kg

DRUGS (2)
  1. ESCITALOPRAM [Suspect]
     Indication: ANXIETY
     Dosage: 1 tablet daily
     Route: 048
     Dates: start: 20120810, end: 20120912
  2. ESCITALOPRAM [Suspect]
     Indication: ANXIETY

REACTIONS (4)
  - Hyperaesthesia [None]
  - Skin burning sensation [None]
  - Eyelid irritation [None]
  - Pain [None]
